FAERS Safety Report 10541231 (Version 1)
Quarter: 2014Q4

REPORT INFORMATION
  Report Type: Spontaneous
  Country: US (occurrence: US)
  Receive Date: 20141024
  Receipt Date: 20141024
  Transmission Date: 20150529
  Serious: Yes (Other)
  Sender: FDA-Public Use
  Company Number: US-ELI_LILLY_AND_COMPANY-US201410004979

PATIENT
  Sex: Female
  Weight: 58.5 kg

DRUGS (2)
  1. ZYPREXA [Suspect]
     Active Substance: OLANZAPINE
     Indication: BIPOLAR DISORDER
     Dosage: UNK, UNKNOWN
     Route: 065
     Dates: start: 201403
  2. DEPAKOTE [Concomitant]
     Active Substance: DIVALPROEX SODIUM
     Indication: BIPOLAR DISORDER
     Dosage: UNK, UNKNOWN
     Route: 065

REACTIONS (7)
  - Fatigue [Unknown]
  - Weight increased [Unknown]
  - Dizziness postural [Unknown]
  - Drooling [Unknown]
  - Ligament pain [Unknown]
  - Apathy [Unknown]
  - Suicidal ideation [Unknown]
